FAERS Safety Report 7766951-5 (Version None)
Quarter: 2011Q3

REPORT INFORMATION
  Report Type: 
  Country: None (occurrence: None)
  Receive Date: 20110901
  Receipt Date: 20100824
  Transmission Date: 20111222
  Serious: Yes (Other)
  Sender: FDA-Public Use
  Company Number: WWISSUE-484

PATIENT
  Age: 49 Year
  Sex: Female

DRUGS (1)
  1. HYDROXYCHLOROQUINE SULFATE [Suspect]
     Indication: OSTEOARTHRITIS
     Dosage: 200MG/2X A DAY
     Dates: start: 20100501, end: 20100801

REACTIONS (1)
  - THERAPEUTIC PRODUCT INEFFECTIVE [None]
